FAERS Safety Report 13861059 (Version 1)
Quarter: 2017Q3

REPORT INFORMATION
  Report Type: Spontaneous
  Country: US (occurrence: US)
  Receive Date: 20170811
  Receipt Date: 20170811
  Transmission Date: 20171127
  Serious: No
  Sender: FDA-Public Use
  Company Number: US-PFIZER INC-2017345441

PATIENT
  Age: 57 Year
  Sex: Male

DRUGS (2)
  1. SUTENT [Suspect]
     Active Substance: SUNITINIB MALATE
     Dosage: 50 MG, CYCLIC (1 CAPSULE, FIRST 4 WEEK ON AND 2 WEEKS OFF)
     Route: 048
     Dates: start: 20170801
  2. SUTENT [Suspect]
     Active Substance: SUNITINIB MALATE
     Indication: METASTATIC RENAL CELL CARCINOMA
     Dosage: 50 MG, CYCLIC (FOR 28 DAYS ON/14 DAYS OFF)
     Dates: start: 20170731

REACTIONS (4)
  - Fatigue [Unknown]
  - Nausea [Unknown]
  - Blood pressure abnormal [Unknown]
  - Asthenia [Unknown]
